FAERS Safety Report 16849515 (Version 1)
Quarter: 2019Q3

REPORT INFORMATION
  Report Type: Spontaneous
  Country: US (occurrence: US)
  Receive Date: 20190803
  Receipt Date: 20190803
  Transmission Date: 20191005
  Serious: No
  Sender: FDA-Public Use
  Company Number: None

PATIENT
  Sex: Male

DRUGS (2)
  1. XALKORI [Suspect]
     Active Substance: CRIZOTINIB
     Indication: MALIGNANT CONNECTIVE TISSUE NEOPLASM
     Route: 048
     Dates: start: 20190627
  2. XALKORI [Suspect]
     Active Substance: CRIZOTINIB
     Indication: SOFT TISSUE SARCOMA
     Route: 048
     Dates: start: 20190627

REACTIONS (2)
  - Dyspepsia [None]
  - Nausea [None]
